FAERS Safety Report 10649001 (Version 1)
Quarter: 2014Q4

REPORT INFORMATION
  Report Type: Spontaneous
  Country: TR (occurrence: TR)
  Receive Date: 20141212
  Receipt Date: 20141212
  Transmission Date: 20150529
  Serious: Yes (Other)
  Sender: FDA-Public Use
  Company Number: TR-ROXANE LABORATORIES, INC.-2014-RO-01853RO

PATIENT
  Age: 17 Year
  Sex: Female

DRUGS (6)
  1. LEVETIRACETAM. [Suspect]
     Active Substance: LEVETIRACETAM
     Indication: EPILEPSY
     Route: 065
  2. CYCLOPHOSPHAMIDE. [Suspect]
     Active Substance: CYCLOPHOSPHAMIDE
     Indication: IMMUNOSUPPRESSION
     Route: 065
  3. BUSULFAN [Suspect]
     Active Substance: BUSULFAN
     Indication: IMMUNOSUPPRESSION
     Route: 065
  4. ANTI-THYMOCYTE GLOBULIN (RABBIT) NOS [Suspect]
     Active Substance: LAPINE T-LYMPHOCYTE IMMUNE GLOBULIN
     Indication: IMMUNOSUPPRESSION
     Route: 065
  5. PHENYTOIN. [Concomitant]
     Active Substance: PHENYTOIN
     Indication: CONVULSION PROPHYLAXIS
     Route: 042
  6. VALPROATE [Suspect]
     Active Substance: VALPROATE SODIUM
     Indication: EPILEPSY
     Route: 065

REACTIONS (1)
  - Seizure [Unknown]
